FAERS Safety Report 14115132 (Version 1)
Quarter: 2017Q4

REPORT INFORMATION
  Report Type: Spontaneous
  Country: US (occurrence: US)
  Receive Date: 20171023
  Receipt Date: 20171023
  Transmission Date: 20180321
  Serious: No
  Sender: FDA-Public Use
  Company Number: US-ALLERGAN-1682507US

PATIENT
  Age: 76 Year
  Sex: Female

DRUGS (2)
  1. LINZESS [Suspect]
     Active Substance: LINACLOTIDE
     Indication: IRRITABLE BOWEL SYNDROME
     Dosage: 145 ?G, UNK
     Route: 048
     Dates: start: 201612
  2. XARELTO [Concomitant]
     Active Substance: RIVAROXABAN
     Indication: BLOOD DISORDER
     Dosage: UNK
     Route: 048
     Dates: start: 2013

REACTIONS (5)
  - Dizziness [Unknown]
  - Off label use [Unknown]
  - Drug prescribing error [Unknown]
  - Diarrhoea [Recovered/Resolved]
  - Drug dose omission [Unknown]
